FAERS Safety Report 4660484-0 (Version None)
Quarter: 2005Q2

REPORT INFORMATION
  Report Type: 
  Country: None (occurrence: None)
  Receive Date: 20050511
  Receipt Date: 20050511
  Transmission Date: 20051028
  Serious: Yes (Death)
  Sender: FDA-Public Use
  Company Number: None

PATIENT
  Age: 77 Year
  Sex: Male
  Weight: 91.6 kg

DRUGS (8)
  1. ZOMETA [Suspect]
     Indication: PAIN
     Dosage: 4 MG IVPB X 1
     Route: 042
     Dates: start: 20041023
  2. ASPIRIN [Concomitant]
  3. GABAPENTIN [Concomitant]
  4. IMDUR [Concomitant]
  5. LISINOPRIL [Concomitant]
  6. SINGULAIR [Concomitant]
  7. MEVACOL [Concomitant]
  8. NIACIN [Concomitant]

REACTIONS (2)
  - BLOOD CREATINE INCREASED [None]
  - REFUSAL OF TREATMENT BY RELATIVE [None]
